FAERS Safety Report 21885728 (Version 1)
Quarter: 2023Q1

REPORT INFORMATION
  Report Type: Spontaneous
  Country: IT (occurrence: IT)
  Receive Date: 20230119
  Receipt Date: 20230119
  Transmission Date: 20230418
  Serious: Yes (Other)
  Sender: FDA-Public Use
  Company Number: IT-JNJFOC-20210356728

PATIENT
  Age: 57 Year
  Sex: Female
  Weight: 63 kg

DRUGS (2)
  1. UPTRAVI [Suspect]
     Active Substance: SELEXIPAG
     Indication: Pulmonary arterial hypertension
     Dosage: 2 TIMES DAILY
     Route: 048
     Dates: start: 20210130
  2. UPTRAVI [Suspect]
     Active Substance: SELEXIPAG
     Dosage: 2 TIMES DAILY
     Route: 048
     Dates: start: 202102

REACTIONS (1)
  - Drug-induced liver injury [Recovered/Resolved]
